FAERS Safety Report 9392095 (Version 3)
Quarter: 2014Q1

REPORT INFORMATION
  Report Type: Report from Study
  Country: CA (occurrence: CA)
  Receive Date: 20130709
  Receipt Date: 20140313
  Transmission Date: 20141002
  Serious: Yes (Hospitalization, Other)
  Sender: FDA-Public Use
  Company Number: CA-ROCHE-1243987

PATIENT
  Age: 46 Year
  Sex: Female
  Weight: 73.5 kg

DRUGS (21)
  1. RITUXAN [Suspect]
     Indication: RHEUMATOID ARTHRITIS
     Dosage: DAY 1 AND DAY 15.
     Route: 042
     Dates: start: 20121128
  2. ACTEMRA [Suspect]
     Indication: RHEUMATOID ARTHRITIS
     Route: 042
     Dates: start: 20101018, end: 20111006
  3. NAPROXEN [Suspect]
     Indication: PRODUCT USED FOR UNKNOWN INDICATION
     Route: 065
  4. PNEUMOVAX [Suspect]
     Indication: PRODUCT USED FOR UNKNOWN INDICATION
     Route: 030
     Dates: start: 201210, end: 201210
  5. NASONEX [Concomitant]
  6. FENTANYL [Concomitant]
     Route: 062
  7. OXYCODONE [Concomitant]
  8. METHOTREXATE [Concomitant]
  9. MELOXICAM [Concomitant]
  10. LORAZEPAM [Concomitant]
  11. ZOPICLONE [Concomitant]
  12. VITAMIN B12 [Concomitant]
  13. FOLIC ACID [Concomitant]
  14. FLOVENT [Concomitant]
  15. SINGULAIR [Concomitant]
  16. METHYLPREDNISOLONE [Concomitant]
     Indication: PREMEDICATION
     Route: 042
     Dates: start: 20111128
  17. METHYLPREDNISOLONE [Concomitant]
     Route: 042
     Dates: start: 20121128
  18. CYMBALTA [Concomitant]
  19. LYRICA [Concomitant]
  20. TRAMADOL [Concomitant]
  21. PANTOPRAZOLE [Concomitant]

REACTIONS (4)
  - Infusion related reaction [Recovered/Resolved]
  - Pulmonary mass [Unknown]
  - Drug ineffective [Unknown]
  - Adverse drug reaction [Unknown]
